FAERS Safety Report 9782738 (Version 3)
Quarter: 2015Q4

REPORT INFORMATION
  Report Type: Report from Study
  Country: US (occurrence: US)
  Receive Date: 20131226
  Receipt Date: 20151223
  Transmission Date: 20160305
  Serious: No
  Sender: FDA-Public Use
  Company Number: US-ABBVIE-12P-163-0940743-00

PATIENT
  Sex: Male
  Weight: 93.07 kg

DRUGS (7)
  1. TOPROL XL [Concomitant]
     Active Substance: METOPROLOL SUCCINATE
     Indication: PRODUCT USED FOR UNKNOWN INDICATION
  2. RADIATION THERAPY [Concomitant]
     Active Substance: RADIATION THERAPY
     Indication: PRODUCT USED FOR UNKNOWN INDICATION
  3. LUPRON DEPOT [Suspect]
     Active Substance: LEUPROLIDE ACETATE
     Indication: PROSTATE CANCER
     Route: 030
     Dates: start: 201004, end: 201204
  4. MICARDIS [Concomitant]
     Active Substance: TELMISARTAN
     Indication: PRODUCT USED FOR UNKNOWN INDICATION
  5. ASPIRIN. [Concomitant]
     Active Substance: ASPIRIN
     Indication: PRODUCT USED FOR UNKNOWN INDICATION
  6. LESCOL [Concomitant]
     Active Substance: FLUVASTATIN SODIUM
     Indication: PRODUCT USED FOR UNKNOWN INDICATION
  7. FISH OIL [Concomitant]
     Active Substance: FISH OIL
     Indication: PRODUCT USED FOR UNKNOWN INDICATION

REACTIONS (4)
  - Pain in extremity [Not Recovered/Not Resolved]
  - Hot flush [Not Recovered/Not Resolved]
  - Hot flush [Not Recovered/Not Resolved]
  - Mood swings [Unknown]

NARRATIVE: CASE EVENT DATE: 2010
